FAERS Safety Report 5771616-5 (Version None)
Quarter: 2008Q2

REPORT INFORMATION
  Report Type: 
  Country: None (occurrence: None)
  Receive Date: 20080613
  Receipt Date: 20080610
  Transmission Date: 20081010
  Serious: Yes (Hospitalization, Other)
  Sender: FDA-Public Use
  Company Number: US-ASTRAZENECA-2007UW05054

PATIENT
  Age: 725 Month
  Sex: Female
  Weight: 99.5 kg

DRUGS (5)
  1. SEROQUEL [Suspect]
     Indication: SCHIZOPHRENIA
     Dosage: 400-500 MG
     Route: 048
     Dates: start: 20060701, end: 20070501
  2. ABILIFY [Concomitant]
     Dosage: 5-15 MG
     Dates: start: 20070901
  3. RISPERDAL [Concomitant]
     Dosage: 2-3 MG
     Dates: start: 20030101, end: 20060501
  4. STELAZINE [Concomitant]
  5. ZOLOFT [Concomitant]
     Dates: start: 19880101

REACTIONS (3)
  - MYOCARDIAL INFARCTION [None]
  - PULMONARY EMBOLISM [None]
  - TYPE 2 DIABETES MELLITUS [None]
